FAERS Safety Report 5784974-2 (Version None)
Quarter: 2008Q2

REPORT INFORMATION
  Report Type: 
  Country: None (occurrence: None)
  Receive Date: 20080605
  Receipt Date: 20080507
  Transmission Date: 20081010
  Serious: No
  Sender: FDA-Public Use
  Company Number: A0723370A

PATIENT
  Sex: Female

DRUGS (1)
  1. ALLI [Suspect]

REACTIONS (7)
  - BLOOD SODIUM INCREASED [None]
  - BOWEL MOVEMENT IRREGULARITY [None]
  - CONSTIPATION [None]
  - FLATULENCE [None]
  - FOOD CRAVING [None]
  - GASTROINTESTINAL SOUNDS ABNORMAL [None]
  - WEIGHT INCREASED [None]
